FAERS Safety Report 22280881 (Version 1)
Quarter: 2023Q2

REPORT INFORMATION
  Report Type: Report from Study
  Country: BE (occurrence: BE)
  Receive Date: 20230503
  Receipt Date: 20230503
  Transmission Date: 20230721
  Serious: Yes (Other)
  Sender: FDA-Public Use
  Company Number: BE-ABBVIE-4728353

PATIENT
  Sex: Female
  Weight: 46 kg

DRUGS (17)
  1. CARBIDOPA\LEVODOPA [Suspect]
     Active Substance: CARBIDOPA\LEVODOPA
     Indication: Parkinson^s disease
     Route: 050
     Dates: start: 20140828
  2. CARBIDOPA\LEVODOPA [Suspect]
     Active Substance: CARBIDOPA\LEVODOPA
     Dosage: MD 0.0 ML CD 1.2 ML/H ED 0.4 ML, REMAINS AT 24
     Route: 050
     Dates: start: 20220509
  3. CARBIDOPA\LEVODOPA [Suspect]
     Active Substance: CARBIDOPA\LEVODOPA
     Dosage: MD 0.0 ML, CD 1.0 ML/H ED 0.4 ML, REMAINS AT 24
     Route: 050
     Dates: start: 20211203, end: 20220509
  4. BETAHISTINE [Concomitant]
     Active Substance: BETAHISTINE
     Indication: Product used for unknown indication
     Dosage: FORM STRENGTH: 16 MILLIGRAM
     Route: 065
  5. ZOCOR [Concomitant]
     Active Substance: SIMVASTATIN
     Indication: Product used for unknown indication
     Dosage: FORM STRENGTH: 20 MILLIGRAM
     Route: 065
  6. UNSPECIFIED INGREDIENT [Concomitant]
     Active Substance: UNSPECIFIED INGREDIENT
     Indication: Product used for unknown indication
     Dosage: FORM STRENGTH: 500 MILLIGRAM
     Route: 065
  7. ASPIRIN [Concomitant]
     Active Substance: ASPIRIN
     Indication: Product used for unknown indication
     Dosage: FORM STRENGTH: 80 MILLIGRAM
     Route: 065
  8. TRAZODONE HYDROCHLORIDE [Concomitant]
     Active Substance: TRAZODONE HYDROCHLORIDE
     Indication: Product used for unknown indication
     Route: 065
  9. Temesta [Concomitant]
     Indication: Product used for unknown indication
     Dosage: 1/4 TABLET
  10. Temesta [Concomitant]
     Indication: Product used for unknown indication
     Dosage: 1/4 TABLET, FORM STRENGTH: 1 MILLIGRAM
     Route: 065
  11. BENSERAZIDE\LEVODOPA [Concomitant]
     Active Substance: BENSERAZIDE\LEVODOPA
     Indication: Product used for unknown indication
     Dosage: TIME INTERVAL: 0.14285714 DAYS: 1/4 TABLET, FORM STRENGTH: 250 MILLIGRAM
     Route: 065
  12. Emconcor minor [Concomitant]
     Indication: Product used for unknown indication
     Dosage: FORM STRENGTH: 2.5 MILLIGRAM
     Route: 065
  13. ESCITALOPRAM OXALATE [Concomitant]
     Active Substance: ESCITALOPRAM OXALATE
     Indication: Product used for unknown indication
     Dosage: FORM STRENGTH: 10 MILLIGRAM
     Route: 065
     Dates: end: 20220910
  14. BISOPROLOL FUMARATE\HYDROCHLOROTHIAZIDE [Concomitant]
     Active Substance: BISOPROLOL FUMARATE\HYDROCHLOROTHIAZIDE
     Indication: Product used for unknown indication
     Dosage: FORM STRENGTH: 2.5 MILLIGRAM
     Route: 065
  15. AVOCA [Concomitant]
     Indication: Product used for unknown indication
     Route: 065
  16. Pantomed [Concomitant]
     Indication: Product used for unknown indication
     Route: 065
  17. LANSOPRAZOLE [Concomitant]
     Active Substance: LANSOPRAZOLE
     Indication: Product used for unknown indication
     Dosage: FORM STRENGTH: 15 MILLIGRAM
     Route: 065

REACTIONS (4)
  - Embedded device [Unknown]
  - Device dislocation [Unknown]
  - Gastrostomy [Unknown]
  - Infection [Unknown]
